FAERS Safety Report 4380797-X (Version None)
Quarter: 2004Q2

REPORT INFORMATION
  Report Type: 
  Country: None (occurrence: None)
  Receive Date: 20040614
  Receipt Date: 20040528
  Transmission Date: 20050107
  Serious: Yes (Other)
  Sender: FDA-Public Use
  Company Number: 2004-BP-04277BP

PATIENT
  Sex: Male
  Weight: 95.26 kg

DRUGS (3)
  1. MIRAPEX [Suspect]
     Indication: PARKINSON'S DISEASE
     Dosage: 4.5 MG - 3.0 MG (1.5 MG,1.5 TID  - BID), PO
     Route: 048
     Dates: start: 19980205
  2. SELEGILINE HCL [Concomitant]
  3. PAXIL [Concomitant]

REACTIONS (2)
  - CONDITION AGGRAVATED [None]
  - PATHOLOGICAL GAMBLING [None]
